FAERS Safety Report 5354757-6 (Version None)
Quarter: 2007Q2

REPORT INFORMATION
  Report Type: 
  Country: None (occurrence: None)
  Receive Date: 20070612
  Receipt Date: 20070531
  Transmission Date: 20071010
  Serious: Yes (Hospitalization)
  Sender: FDA-Public Use
  Company Number: BR-PFIZER INC-2007032123

PATIENT
  Age: 28 Year
  Sex: Male

DRUGS (1)
  1. CABERGOLINE [Suspect]
     Indication: HYPERPROLACTINAEMIA
     Route: 048
     Dates: start: 20070301, end: 20070401

REACTIONS (1)
  - BLOOD CREATINE PHOSPHOKINASE INCREASED [None]
